FAERS Safety Report 8805922 (Version 1)
Quarter: 2012Q4

REPORT INFORMATION
  Report Type: Spontaneous
  Country: US (occurrence: None)
  Receive Date: 20120917
  Receipt Date: 20120917
  Transmission Date: 20130627
  Serious: Yes (Hospitalization)
  Sender: FDA-Public Use
  Company Number: UTC-022923

PATIENT
  Age: 51 Year
  Sex: Female
  Weight: 115 kg

DRUGS (1)
  1. TYVASO (6 MICROGRAM, AEROSOL FOR INHALATION) (TREPROSTINIL SODIUM) [Suspect]
     Indication: CHRONIC PULMONARY HEART DISEASE
     Route: 055
     Dates: start: 20120703

REACTIONS (2)
  - Fluid retention [None]
  - Fluid overload [None]
